FAERS Safety Report 5609426-1 (Version None)
Quarter: 2008Q1

REPORT INFORMATION
  Report Type: 
  Country: None (occurrence: None)
  Receive Date: 20080131
  Receipt Date: 20080130
  Transmission Date: 20080703
  Serious: Yes (Death, Life-Threatening)
  Sender: FDA-Public Use
  Company Number: US-BRISTOL-MYERS SQUIBB COMPANY-13734702

PATIENT
  Age: 67 Year
  Sex: Male

DRUGS (12)
  1. DEFINITY [Suspect]
     Indication: ECHOCARDIOGRAM
     Route: 042
     Dates: start: 20070306, end: 20070306
  2. LASIX [Concomitant]
  3. ASPIRIN [Concomitant]
  4. METFORMIN HCL [Concomitant]
  5. DIGOXIN [Concomitant]
  6. COREG [Concomitant]
  7. LISINOPRIL [Concomitant]
  8. LEVOTHYROXINE SODIUM [Concomitant]
  9. GLIPIZIDE [Concomitant]
  10. AVANDIA [Concomitant]
  11. ADVICOR [Concomitant]
  12. CARDIOLITE [Concomitant]
     Dates: start: 20070306, end: 20070306

REACTIONS (4)
  - ACUTE MYOCARDIAL INFARCTION [None]
  - ANOXIC ENCEPHALOPATHY [None]
  - CARDIAC ARREST [None]
  - CARDIOPULMONARY FAILURE [None]
